FAERS Safety Report 4551582-0 (Version None)
Quarter: 2005Q1

REPORT INFORMATION
  Report Type: 
  Country: None (occurrence: None)
  Receive Date: 20050113
  Receipt Date: 20050105
  Transmission Date: 20050727
  Serious: Yes (Hospitalization)
  Sender: FDA-Public Use
  Company Number: FR-BRISTOL-MYERS SQUIBB COMPANY-12820544

PATIENT
  Age: 65 Year
  Sex: Male

DRUGS (2)
  1. ERBITUX [Suspect]
     Indication: COLORECTAL CANCER
     Route: 041
     Dates: start: 20040921
  2. CAMPTOSAR [Concomitant]
     Indication: COLORECTAL CANCER
     Route: 041
     Dates: start: 20040921

REACTIONS (5)
  - DERMATITIS ACNEIFORM [None]
  - DRY SKIN [None]
  - ECZEMA [None]
  - FOLLICULITIS [None]
  - TOXIC EPIDERMAL NECROLYSIS [None]
